FAERS Safety Report 9109016 (Version 2)
Quarter: 2013Q1

REPORT INFORMATION
  Report Type: Spontaneous
  Country: US (occurrence: US)
  Receive Date: 20130222
  Receipt Date: 20130305
  Transmission Date: 20140127
  Serious: Yes (Hospitalization)
  Sender: FDA-Public Use
  Company Number: US-GLAXOSMITHKLINE-A0996428A

PATIENT
  Age: 52 Year
  Sex: Male

DRUGS (2)
  1. AVANDIA [Suspect]
     Indication: DIABETES MELLITUS
     Dosage: 8MG TWICE PER DAY
     Route: 048
     Dates: start: 20000905, end: 20070703
  2. AVANDAMET [Suspect]
     Indication: DIABETES MELLITUS
     Route: 048
     Dates: start: 20040819, end: 20050208

REACTIONS (10)
  - Myocardial infarction [Not Recovered/Not Resolved]
  - Pain [Unknown]
  - Angina unstable [Unknown]
  - Cardiac failure congestive [Unknown]
  - Cardiac disorder [Unknown]
  - Arteriosclerosis coronary artery [Unknown]
  - Cardiac operation [Unknown]
  - Cardiac disorder [Unknown]
  - Fatigue [Unknown]
  - Dyspnoea [Unknown]
